FAERS Safety Report 18190343 (Version 1)
Quarter: 2020Q3

REPORT INFORMATION
  Report Type: Other
  Country: DE (occurrence: DE)
  Receive Date: 20200825
  Receipt Date: 20200825
  Transmission Date: 20201103
  Serious: Yes (Other)
  Sender: FDA-Public Use
  Company Number: DE-LUPIN PHARMACEUTICALS INC.-2020-04955

PATIENT
  Age: 1 Day
  Sex: Male
  Weight: 3.93 kg

DRUGS (8)
  1. BUPROPION. [Concomitant]
     Active Substance: BUPROPION
     Dosage: UNK
     Route: 064
  2. SYMBICORT [Concomitant]
     Active Substance: BUDESONIDE\FORMOTEROL FUMARATE DIHYDRATE
     Indication: ASTHMA
     Dosage: 320 (MICROG/D (BIS 160))/9 (MICROG/D (BIS 4.5))
     Route: 064
     Dates: start: 20190518, end: 20200221
  3. MIRTAZAPINE. [Suspect]
     Active Substance: MIRTAZAPINE
     Indication: SLEEP DISORDER
     Dosage: 1.87 MILLIGRAM, QD (A 15 MG TABLET WAS DIVIDED SEVERAL TIMES BY THE PATIENT) (36. ? 39.6. GESTATIONA
     Route: 064
  4. BUPROPION. [Concomitant]
     Active Substance: BUPROPION
     Indication: DEPRESSION
     Dosage: UNK
     Route: 064
     Dates: start: 20190518, end: 20190805
  5. PARACETAMOL [Concomitant]
     Active Substance: ACETAMINOPHEN
     Indication: BACK PAIN
     Dosage: 500 (MG/D (BEI BEDARF))/TAKEN ON APPROXIMATELY 9 DAYS DURING THE ENTIRE PREGNANCY
     Route: 064
     Dates: start: 20190518, end: 20200221
  6. INFLUVAC TETRA [Concomitant]
     Active Substance: INFLUENZA VIRUS VACCINE QUADRIVALENT TYPE A+B
     Indication: IMMUNISATION
     Dosage: UNK (20.2. ? 20.2. GESTATIONAL WEEK)
     Route: 064
     Dates: start: 20191007, end: 20191007
  7. L?THYROXIN [LEVOTHYROXINE SODIUM] [Concomitant]
     Active Substance: LEVOTHYROXINE SODIUM
     Indication: HYPOTHYROIDISM
     Dosage: 50 MICROGRAM, QD (0. ? 37. GESTATIONAL WEEK)
     Route: 064
  8. ESCITALOPRAM [Suspect]
     Active Substance: ESCITALOPRAM OXALATE
     Indication: ANXIETY DISORDER
     Dosage: 10 MILLIGRAM, BID (0.0 ? 39.6. GESTATIONAL WEEK)
     Route: 064
     Dates: start: 20190518, end: 20200221

REACTIONS (7)
  - Bradycardia neonatal [Recovered/Resolved]
  - Atrial septal defect [Unknown]
  - Foetal exposure during pregnancy [Unknown]
  - Respiratory disorder neonatal [Recovered/Resolved]
  - Hypotonia [Recovered/Resolved]
  - Infantile apnoea [Recovered/Resolved]
  - Drug withdrawal syndrome neonatal [Recovered/Resolved]

NARRATIVE: CASE EVENT DATE: 20200221
